FAERS Safety Report 25858843 (Version 1)
Quarter: 2025Q3

REPORT INFORMATION
  Report Type: Spontaneous
  Country: US (occurrence: US)
  Receive Date: 20250929
  Receipt Date: 20250929
  Transmission Date: 20251020
  Serious: Yes (Hospitalization)
  Sender: RADIUS PHARM
  Company Number: US-RADIUS HEALTH INC.-US-RADIUS-25054176

PATIENT
  Age: 73 Year
  Sex: Female

DRUGS (1)
  1. TYMLOS [Suspect]
     Active Substance: ABALOPARATIDE
     Indication: Senile osteoporosis
     Dosage: 80 MICROGRAM, QD
     Route: 058
     Dates: start: 20240701

REACTIONS (9)
  - Sepsis [Recovered/Resolved]
  - Limb injury [Recovered/Resolved]
  - Septic shock [Unknown]
  - Clostridium difficile infection [Recovered/Resolved]
  - Limb injury [Recovering/Resolving]
  - Wound haematoma [Recovering/Resolving]
  - Wound secretion [Recovering/Resolving]
  - Contusion [Recovering/Resolving]
  - Product dose omission issue [Unknown]

NARRATIVE: CASE EVENT DATE: 20250801
